FAERS Safety Report 8417723-X (Version None)
Quarter: 2012Q2

REPORT INFORMATION
  Report Type: 
  Country: None (occurrence: None)
  Receive Date: 20120607
  Receipt Date: 20120601
  Transmission Date: 20120825
  Serious: Yes (Hospitalization)
  Sender: FDA-Public Use
  Company Number: DE-BIOGENIDEC-2012BI016879

PATIENT
  Age: 46 Year
  Sex: Female
  Weight: 78 kg

DRUGS (12)
  1. SERTRALINE HYDROCHLORIDE [Concomitant]
     Indication: DEPRESSION
     Route: 048
  2. SERTRALINE HYDROCHLORIDE [Concomitant]
     Indication: ANXIETY
     Route: 048
  3. NEXIUM [Concomitant]
     Indication: PROPHYLAXIS
     Dates: start: 20120508
  4. TYSABRI [Suspect]
     Indication: SECONDARY PROGRESSIVE MULTIPLE SCLEROSIS
     Route: 042
     Dates: start: 20080101, end: 20120514
  5. OXAZEPAM [Concomitant]
     Indication: DEPRESSION
     Route: 048
  6. ZOLOFT [Concomitant]
     Indication: DEPRESSION
     Route: 048
  7. ASPIRIN [Concomitant]
     Indication: DEPRESSION
     Route: 048
  8. METOPROLOL TARTRATE [Concomitant]
     Indication: PRODUCT USED FOR UNKNOWN INDICATION
  9. ZOPICLON [Concomitant]
     Indication: PRODUCT USED FOR UNKNOWN INDICATION
  10. OXAZEPAM [Concomitant]
     Indication: ANXIETY
     Route: 048
  11. ASPIRIN [Concomitant]
     Indication: ANXIETY
     Route: 048
  12. EMSELEX [Concomitant]
     Indication: PRODUCT USED FOR UNKNOWN INDICATION

REACTIONS (1)
  - PROGRESSIVE MULTIFOCAL LEUKOENCEPHALOPATHY [None]
